FAERS Safety Report 5197707-8 (Version None)
Quarter: 2007Q1

REPORT INFORMATION
  Report Type: 
  Country: None (occurrence: None)
  Receive Date: 20070103
  Receipt Date: 20061226
  Transmission Date: 20070707
  Serious: Yes (Death)
  Sender: FDA-Public Use
  Company Number: FR-JNJFOC-20061206468

PATIENT
  Age: 57 Year
  Sex: Female

DRUGS (5)
  1. HALDOL [Suspect]
     Indication: SCHIZOPHRENIA
     Route: 048
  2. LEPTICUR [Suspect]
     Indication: DRUG USE FOR UNKNOWN INDICATION
  3. NOZINAN [Suspect]
     Indication: DRUG USE FOR UNKNOWN INDICATION
     Route: 048
  4. LOXAPAC [Suspect]
     Indication: DRUG USE FOR UNKNOWN INDICATION
     Route: 048
  5. ROHYPNOL [Concomitant]

REACTIONS (1)
  - COLITIS [None]
